FAERS Safety Report 12680020 (Version 1)
Quarter: 2016Q3

REPORT INFORMATION
  Report Type: Spontaneous
  Country: US (occurrence: US)
  Receive Date: 20160824
  Receipt Date: 20160824
  Transmission Date: 20161109
  Serious: Yes (Hospitalization)
  Sender: FDA-Public Use
  Company Number: US-FRI-1000080810

PATIENT
  Age: 66 Year
  Sex: Male
  Weight: 75.46 kg

DRUGS (3)
  1. BLINDED RUXOLITINIB OR PLACEBO [Suspect]
     Active Substance: RUXOLITINIB
     Indication: PANCREATIC CARCINOMA METASTATIC
     Route: 048
     Dates: start: 20151002, end: 20151009
  2. CAPECITABINE. [Suspect]
     Active Substance: CAPECITABINE
     Indication: PANCREATIC CARCINOMA METASTATIC
  3. LEXAPRO [Suspect]
     Active Substance: ESCITALOPRAM OXALATE
     Dates: end: 20151010

REACTIONS (1)
  - Hyponatraemia [Recovered/Resolved]

NARRATIVE: CASE EVENT DATE: 20151008
